FAERS Safety Report 11874526 (Version 1)
Quarter: 2015Q4

REPORT INFORMATION
  Report Type: Spontaneous
  Country: US (occurrence: US)
  Receive Date: 20151229
  Receipt Date: 20151229
  Transmission Date: 20160305
  Serious: Yes (Other)
  Sender: FDA-Public Use
  Company Number: PHEH2015US006441

PATIENT
  Sex: Female
  Weight: 79 kg

DRUGS (5)
  1. PROZAC [Suspect]
     Active Substance: FLUOXETINE HYDROCHLORIDE
     Indication: DEPRESSION
     Dosage: 20 MG, TID
     Route: 065
  2. CARBAMAZEPINE. [Suspect]
     Active Substance: CARBAMAZEPINE
     Indication: SEIZURE
     Dosage: 300 MG, TID
     Route: 065
  3. ALPRAZOLAM. [Suspect]
     Active Substance: ALPRAZOLAM
     Indication: EPILEPSY
  4. TEGRETOL [Suspect]
     Active Substance: CARBAMAZEPINE
     Indication: PRODUCT USED FOR UNKNOWN INDICATION
     Dosage: 100 MG, TID
     Route: 065
  5. ALPRAZOLAM. [Suspect]
     Active Substance: ALPRAZOLAM
     Indication: ANXIETY
     Dosage: 4.5 MG, QD (1 MG THREE TIMES A DAY AND ONE AND HALF MG AT NIGHT)
     Route: 065

REACTIONS (13)
  - Overdose [Recovered/Resolved]
  - Drug withdrawal syndrome [Recovered/Resolved]
  - Tremor [Recovered/Resolved]
  - Drug ineffective [Recovered/Resolved]
  - Malaise [Recovered/Resolved]
  - Hypertension [Recovered/Resolved]
  - Anxiety [Recovered/Resolved]
  - Seizure [Recovered/Resolved]
  - Renal disorder [Recovered/Resolved]
  - Mental disorder [Recovered/Resolved]
  - Insomnia [Recovered/Resolved]
  - Muscle twitching [Recovered/Resolved]
  - Dyskinesia [Recovered/Resolved]
